FAERS Safety Report 4967733-X (Version None)
Quarter: 2006Q2

REPORT INFORMATION
  Report Type: 
  Country: None (occurrence: None)
  Receive Date: 20060410
  Receipt Date: 20060329
  Transmission Date: 20061013
  Serious: Yes (Hospitalization)
  Sender: FDA-Public Use
  Company Number: FR-JNJFOC-20060307611

PATIENT
  Age: 59 Year
  Sex: Male

DRUGS (2)
  1. REMINYL [Suspect]
     Route: 048
  2. EBIXA [Suspect]
     Route: 048

REACTIONS (6)
  - DIVERTICULITIS [None]
  - DRUG INEFFECTIVE [None]
  - GENERAL PHYSICAL HEALTH DETERIORATION [None]
  - PROCTOCOLITIS [None]
  - RECTAL ULCER [None]
  - WEIGHT DECREASED [None]
